FAERS Safety Report 16014791 (Version 7)
Quarter: 2019Q4

REPORT INFORMATION
  Report Type: Report from Study
  Country: US (occurrence: US)
  Receive Date: 20190227
  Receipt Date: 20191029
  Transmission Date: 20200122
  Serious: Yes (Hospitalization, Other)
  Sender: FDA-Public Use
  Company Number: US-ACTELION-A-US2017-155667

PATIENT
  Age: 49 Year
  Sex: Female
  Weight: 90.7 kg

DRUGS (9)
  1. VELETRI [Suspect]
     Active Substance: EPOPROSTENOL
     Dosage: 38 NG/KG, PER MIN
     Route: 042
  2. OPSUMIT [Suspect]
     Active Substance: MACITENTAN
     Indication: PULMONARY HYPERTENSION
     Dosage: UNK
     Route: 048
     Dates: start: 20170317
  3. VELETRI [Suspect]
     Active Substance: EPOPROSTENOL
     Indication: PULMONARY HYPERTENSION
     Dosage: 4.5 NG/KG, PER MIN
     Route: 042
  4. VELETRI [Suspect]
     Active Substance: EPOPROSTENOL
     Dosage: 16 NG/KG, PER MIN
     Route: 042
  5. VELETRI [Suspect]
     Active Substance: EPOPROSTENOL
     Dosage: 35 NG/KG, PER MIN
     Route: 042
  6. VELETRI [Suspect]
     Active Substance: EPOPROSTENOL
     Dosage: 37.8 NG
     Route: 042
  7. SILDENAFIL CITRATE. [Concomitant]
     Active Substance: SILDENAFIL CITRATE
  8. CARDIZEM [Concomitant]
     Active Substance: DILTIAZEM HYDROCHLORIDE
     Dosage: 120 MG, UNK
     Dates: start: 20170529
  9. DILTIAZEM. [Concomitant]
     Active Substance: DILTIAZEM

REACTIONS (24)
  - Device occlusion [Recovered/Resolved]
  - Headache [Not Recovered/Not Resolved]
  - Urinary incontinence [Unknown]
  - Dyspnoea exertional [Recovering/Resolving]
  - Flushing [Unknown]
  - Atrial tachycardia [Not Recovered/Not Resolved]
  - Diarrhoea [Unknown]
  - Weight increased [Unknown]
  - Neuropathy peripheral [Unknown]
  - Pulmonary hypertension [Unknown]
  - Nausea [Not Recovered/Not Resolved]
  - Catheter site erythema [Unknown]
  - Pain in extremity [Unknown]
  - Chest pain [Unknown]
  - Cough [Unknown]
  - Tinnitus [Unknown]
  - Atrial fibrillation [Not Recovered/Not Resolved]
  - Decreased appetite [Not Recovered/Not Resolved]
  - Palpitations [Unknown]
  - Unevaluable event [Unknown]
  - Catheter management [Unknown]
  - Pain in jaw [Unknown]
  - Blood potassium decreased [Unknown]
  - Fatigue [Unknown]

NARRATIVE: CASE EVENT DATE: 20170525
